FAERS Safety Report 12824492 (Version 1)
Quarter: 2016Q4

REPORT INFORMATION
  Report Type: Report from Study
  Country: MX (occurrence: MX)
  Receive Date: 20161007
  Receipt Date: 20161007
  Transmission Date: 20170207
  Serious: Yes (Death, Other)
  Sender: FDA-Public Use
  Company Number: MX-AMGEN-MEXSL2016112124

PATIENT
  Age: 54 Year
  Sex: Female
  Weight: 80.2 kg

DRUGS (1)
  1. VECTIBIX [Suspect]
     Active Substance: PANITUMUMAB
     Indication: METASTASES TO CENTRAL NERVOUS SYSTEM
     Dosage: UNK, EVERY 15 DAYS
     Route: 042
     Dates: start: 20160719

REACTIONS (5)
  - Colorectal cancer [Unknown]
  - Nasal disorder [Recovering/Resolving]
  - Oral disorder [Recovering/Resolving]
  - Cheilitis [Recovering/Resolving]
  - Death [Fatal]

NARRATIVE: CASE EVENT DATE: 20160721
